FAERS Safety Report 9112244 (Version 1)
Quarter: 2013Q1

REPORT INFORMATION
  Report Type: Spontaneous
  Country: US (occurrence: US)
  Receive Date: 20130219
  Receipt Date: 20130219
  Transmission Date: 20140127
  Serious: No
  Sender: FDA-Public Use
  Company Number: US-BRISTOL-MYERS SQUIBB COMPANY-16850687

PATIENT
  Age: 71 Year
  Sex: Female
  Weight: 79.36 kg

DRUGS (5)
  1. ABATACEPT SUBQ INJECTION 125MG/ML [Suspect]
     Indication: RHEUMATOID ARTHRITIS
     Dosage: PRES#:65385411899,65385411899?LOT2:1K69729OR28?NDC#2:0003218831?4SRNGIN1BOX+3INOTHER?LSTINF3AG12
     Route: 058
  2. COREG [Concomitant]
  3. VITAMINS [Concomitant]
  4. FOLIC ACID [Concomitant]
  5. BIOTIN [Concomitant]

REACTIONS (2)
  - Alopecia [Not Recovered/Not Resolved]
  - Contusion [Unknown]
